FAERS Safety Report 20405324 (Version 2)
Quarter: 2022Q1

REPORT INFORMATION
  Report Type: Spontaneous
  Country: US (occurrence: US)
  Receive Date: 20220131
  Receipt Date: 20220302
  Transmission Date: 20220424
  Serious: No
  Sender: FDA-Public Use
  Company Number: US-BAUSCH-BL-2022-002107

PATIENT
  Age: 51 Year
  Sex: Female

DRUGS (1)
  1. JUBLIA [Suspect]
     Active Substance: EFINACONAZOLE
     Indication: Onychomycosis
     Route: 061
     Dates: start: 202109, end: 202201

REACTIONS (5)
  - Skin swelling [Unknown]
  - Erythema [Unknown]
  - Inflammation [Unknown]
  - Pruritus [Unknown]
  - Application site pain [Unknown]
